FAERS Safety Report 23757093 (Version 2)
Quarter: 2024Q2

REPORT INFORMATION
  Report Type: Spontaneous
  Country: US (occurrence: US)
  Receive Date: 20240418
  Receipt Date: 20240624
  Transmission Date: 20240715
  Serious: No
  Sender: FDA-Public Use
  Company Number: US-PFIZER INC-PV202400051267

PATIENT
  Age: 67 Year
  Sex: Female

DRUGS (21)
  1. DOCETAXEL [Suspect]
     Active Substance: DOCETAXEL\DOCETAXEL ANHYDROUS
     Indication: Breast cancer metastatic
     Dosage: 165 MG, CYCLIC (CYCLE 1) EVERY THREE WEEKS
     Dates: start: 20180330, end: 20180330
  2. DOCETAXEL [Suspect]
     Active Substance: DOCETAXEL\DOCETAXEL ANHYDROUS
     Dosage: 124 MG, CYCLIC (CYCLE 2) EVERY THREE WEEKS
     Dates: start: 2018, end: 2018
  3. DOCETAXEL [Suspect]
     Active Substance: DOCETAXEL\DOCETAXEL ANHYDROUS
     Dosage: 116 MG, CYCLIC (CYCLE 3) EVERY THREE WEEKS
     Dates: start: 2018, end: 2018
  4. DOCETAXEL [Suspect]
     Active Substance: DOCETAXEL\DOCETAXEL ANHYDROUS
     Dosage: 116 MG, CYCLIC (CYCLE 4) EVERY THREE WEEKS
     Dates: start: 2018, end: 2018
  5. DOCETAXEL [Suspect]
     Active Substance: DOCETAXEL\DOCETAXEL ANHYDROUS
     Dosage: 116 MG, CYCLIC (CYCLE 5) EVERY THREE WEEKS
     Dates: start: 2018, end: 2018
  6. DOCETAXEL [Suspect]
     Active Substance: DOCETAXEL\DOCETAXEL ANHYDROUS
     Dosage: 116 MG, CYCLIC (CYCLE 6) EVERY THREE WEEKS
     Dates: start: 20180718, end: 20180718
  7. TAXOTERE [Suspect]
     Active Substance: DOCETAXEL
     Indication: Breast cancer metastatic
     Dosage: 165 MG, CYCLIC (CYCLE 1) EVERY THREE WEEKS
     Dates: start: 20180330, end: 20180330
  8. TAXOTERE [Suspect]
     Active Substance: DOCETAXEL
     Dosage: 124 MG, CYCLIC (CYCLE 2) EVERY THREE WEEKS
     Dates: start: 2018, end: 2018
  9. TAXOTERE [Suspect]
     Active Substance: DOCETAXEL
     Dosage: 116 MG, CYCLIC (CYCLE 3) EVERY THREE WEEKS
     Dates: start: 2018, end: 2018
  10. TAXOTERE [Suspect]
     Active Substance: DOCETAXEL
     Dosage: 116 MG, CYCLIC (CYCLE 4) EVERY THREE WEEKS
     Dates: start: 2018, end: 2018
  11. TAXOTERE [Suspect]
     Active Substance: DOCETAXEL
     Dosage: 116 MG, CYCLIC (CYCLE 5) EVERY THREE WEEKS
     Dates: start: 2018, end: 2018
  12. TAXOTERE [Suspect]
     Active Substance: DOCETAXEL
     Dosage: 116 MG, CYCLIC (CYCLE 6) EVERY THREE WEEKS
     Dates: start: 20180718, end: 20180718
  13. DOCETAXEL [Suspect]
     Active Substance: DOCETAXEL\DOCETAXEL ANHYDROUS
     Indication: Breast cancer metastatic
     Dosage: 165 MG, CYCLIC (CYCLE 1) EVERY THREE WEEKS
     Dates: start: 20180330, end: 20180330
  14. DOCETAXEL [Suspect]
     Active Substance: DOCETAXEL\DOCETAXEL ANHYDROUS
     Dosage: 124 MG, CYCLIC (CYCLE 2) EVERY THREE WEEKS
     Dates: start: 2018, end: 2018
  15. DOCETAXEL [Suspect]
     Active Substance: DOCETAXEL\DOCETAXEL ANHYDROUS
     Dosage: 116 MG, CYCLIC (CYCLE 3) EVERY THREE WEEKS
     Dates: start: 2018, end: 2018
  16. DOCETAXEL [Suspect]
     Active Substance: DOCETAXEL\DOCETAXEL ANHYDROUS
     Dosage: 116 MG, CYCLIC (CYCLE  4) EVERY THREE WEEKS
     Dates: start: 2018, end: 2018
  17. DOCETAXEL [Suspect]
     Active Substance: DOCETAXEL\DOCETAXEL ANHYDROUS
     Dosage: 116 MG, CYCLIC (CYCLE 5) EVERY THREE WEEKS
     Dates: start: 2018, end: 2018
  18. DOCETAXEL [Suspect]
     Active Substance: DOCETAXEL\DOCETAXEL ANHYDROUS
     Dosage: 116 MG, CYCLIC (CYCLE 6) EVERY THREE WEEKS
     Dates: start: 20180718, end: 20180718
  19. PERJETA [Concomitant]
     Active Substance: PERTUZUMAB
     Indication: Chemotherapy
     Dosage: UNK
  20. HERCEPTIN [Concomitant]
     Active Substance: TRASTUZUMAB
     Indication: Chemotherapy
     Dosage: UNK
  21. CARBOPLATIN [Concomitant]
     Active Substance: CARBOPLATIN
     Indication: Chemotherapy
     Dosage: UNK

REACTIONS (2)
  - Lacrimation increased [Recovering/Resolving]
  - Lacrimal structure injury [Not Recovered/Not Resolved]

NARRATIVE: CASE EVENT DATE: 20180506
